FAERS Safety Report 9845625 (Version 3)
Quarter: 2014Q1

REPORT INFORMATION
  Report Type: Spontaneous
  Country: US (occurrence: US)
  Receive Date: 20140127
  Receipt Date: 20140219
  Transmission Date: 20141002
  Serious: Yes (Hospitalization, Other)
  Sender: FDA-Public Use
  Company Number: US-BAXTER-2014BAX002894

PATIENT
  Sex: Male

DRUGS (2)
  1. DIANEAL LOW CALCIUM [Suspect]
     Indication: PERITONEAL DIALYSIS
     Route: 033
     Dates: end: 20140113
  2. CEFEPIME [Suspect]
     Indication: PERITONITIS
     Route: 033

REACTIONS (4)
  - Fungal infection [Unknown]
  - Peritonitis bacterial [Recovering/Resolving]
  - Fungal peritonitis [Recovering/Resolving]
  - Peritoneal dialysis complication [Unknown]
